FAERS Safety Report 5871249-6 (Version None)
Quarter: 2008Q3

REPORT INFORMATION
  Report Type: 
  Country: None (occurrence: None)
  Receive Date: 20080903
  Receipt Date: 20080903
  Transmission Date: 20090109
  Serious: Yes (Life-Threatening, Hospitalization)
  Sender: FDA-Public Use
  Company Number: None

PATIENT
  Age: 48 Year
  Sex: Male
  Weight: 73.4827 kg

DRUGS (6)
  1. ABACAVIR [Suspect]
     Indication: ACQUIRED IMMUNODEFICIENCY SYNDROME
     Dosage: 600MG DAILY
     Dates: start: 20010305, end: 20080829
  2. VIREAD [Concomitant]
  3. LEXIVA [Concomitant]
  4. LIPITOR [Concomitant]
  5. WELLBUTRIN XL [Concomitant]
  6. DAPSONE [Concomitant]

REACTIONS (3)
  - ACUTE MYOCARDIAL INFARCTION [None]
  - CORONARY ARTERY DISEASE [None]
  - HIGH DENSITY LIPOPROTEIN DECREASED [None]
